FAERS Safety Report 20610206 (Version 1)
Quarter: 2022Q1

REPORT INFORMATION
  Report Type: Spontaneous
  Country: SK (occurrence: SK)
  Receive Date: 20220318
  Receipt Date: 20220318
  Transmission Date: 20220423
  Serious: Yes (Other)
  Sender: FDA-Public Use
  Company Number: SK-NOVPHSZ-PHHY2019SK054872

PATIENT
  Age: 32 Year
  Sex: Male
  Weight: 92 kg

DRUGS (10)
  1. RAMIPRIL [Suspect]
     Active Substance: RAMIPRIL
     Indication: Product used for unknown indication
     Dosage: UNK
     Route: 065
  2. FORMOTEROL [Suspect]
     Active Substance: FORMOTEROL
     Indication: Product used for unknown indication
     Dosage: UNK
     Route: 065
  3. CYCLOPHOSPHAMIDE [Suspect]
     Active Substance: CYCLOPHOSPHAMIDE
     Indication: Granulomatosis with polyangiitis
     Dosage: 50 MILLIGRAM
     Route: 065
     Dates: start: 201612
  4. ALBUTEROL [Suspect]
     Active Substance: ALBUTEROL
     Indication: Product used for unknown indication
     Dosage: UNK
     Route: 065
  5. OMEPRAZOLE [Suspect]
     Active Substance: OMEPRAZOLE
     Indication: Granulomatosis with polyangiitis
     Dosage: 20 MILLIGRAM
     Route: 048
  6. PREDNISOLONE [Suspect]
     Active Substance: PREDNISOLONE
     Indication: Granulomatosis with polyangiitis
     Dosage: 80 MILLIGRAM
     Route: 065
  7. PREDNISONE [Suspect]
     Active Substance: PREDNISONE
     Indication: Product used for unknown indication
     Dosage: 30 MILLIGRAM, ONCE A DAY
     Route: 065
  8. PREDNISONE [Suspect]
     Active Substance: PREDNISONE
     Dosage: 40 MILLIGRAM, ONCE A DAY
     Route: 065
  9. PREDNISONE [Suspect]
     Active Substance: PREDNISONE
     Dosage: 15 MILLIGRAM, ONCE A DAY
     Route: 065
  10. PREDNISONE [Suspect]
     Active Substance: PREDNISONE
     Dosage: 20 MILLIGRAM, ONCE A DAY
     Route: 065

REACTIONS (3)
  - Osteoporosis [Recovering/Resolving]
  - Rib fracture [Recovering/Resolving]
  - Spinal fracture [Recovering/Resolving]

NARRATIVE: CASE EVENT DATE: 20141201
